FAERS Safety Report 15779322 (Version 3)
Quarter: 2019Q1

REPORT INFORMATION
  Report Type: Spontaneous
  Country: US (occurrence: US)
  Receive Date: 20190101
  Receipt Date: 20190204
  Transmission Date: 20190417
  Serious: Yes (Hospitalization)
  Sender: FDA-Public Use
  Company Number: US-GLAXOSMITHKLINE-US2018GSK232849

PATIENT
  Sex: Male

DRUGS (6)
  1. OPSUMIT [Concomitant]
     Active Substance: MACITENTAN
  2. FELODIPINE. [Concomitant]
     Active Substance: FELODIPINE
  3. ADCIRCA [Concomitant]
     Active Substance: TADALAFIL
  4. FLOLAN [Suspect]
     Active Substance: EPOPROSTENOL SODIUM
     Indication: PULMONARY ARTERIAL HYPERTENSION
     Dosage: 54 DF, CO
     Route: 042
     Dates: start: 20020711
  5. COUMADIN [Concomitant]
     Active Substance: WARFARIN SODIUM
  6. FLOLAN DILUENT PH 12 [Suspect]
     Active Substance: GLYCINE\MANNITOL\SODIUM CHLORIDE
     Indication: PULMONARY ARTERIAL HYPERTENSION
     Dosage: UNK, CO
     Route: 042
     Dates: start: 20181220

REACTIONS (4)
  - Device kink [Unknown]
  - Weight increased [Unknown]
  - Polyuria [Unknown]
  - Fluid retention [Unknown]
